FAERS Safety Report 7068651-6 (Version None)
Quarter: 2010Q4

REPORT INFORMATION
  Report Type: 
  Country: None (occurrence: None)
  Receive Date: 20101027
  Receipt Date: 20101027
  Transmission Date: 20110411
  Serious: No
  Sender: FDA-Public Use
  Company Number: None

PATIENT
  Sex: Male
  Weight: 117.03 kg

DRUGS (2)
  1. CARBOPLATIN [Suspect]
     Dosage: 1050 MG
  2. TAXOL [Suspect]
     Dosage: 468 MG

REACTIONS (1)
  - NEUTROPHIL COUNT DECREASED [None]
